APPROVED DRUG PRODUCT: DIAZEPAM
Active Ingredient: DIAZEPAM
Strength: 2MG
Dosage Form/Route: TABLET;ORAL
Application: A070325 | Product #002 | TE Code: AB
Applicant: MYLAN PHARMACEUTICALS INC
Approved: Sep 4, 1985 | RLD: No | RS: No | Type: RX